FAERS Safety Report 9052608 (Version 2)
Quarter: 2013Q1

REPORT INFORMATION
  Report Type: Spontaneous
  Country: IT (occurrence: IT)
  Receive Date: 20130207
  Receipt Date: 20130313
  Transmission Date: 20140127
  Serious: Yes (Hospitalization)
  Sender: FDA-Public Use
  Company Number: IT-SANOFI-AVENTIS-2013SA006634

PATIENT
  Age: 79 Year
  Sex: Female

DRUGS (8)
  1. LASIX [Suspect]
     Indication: PRODUCT USED FOR UNKNOWN INDICATION
     Route: 048
     Dates: start: 20111205, end: 20121204
  2. PROPRANOLOL [Suspect]
     Indication: PRODUCT USED FOR UNKNOWN INDICATION
     Route: 048
     Dates: start: 20111205, end: 20121204
  3. ENALAPRIL [Suspect]
     Indication: PRODUCT USED FOR UNKNOWN INDICATION
     Route: 048
     Dates: start: 20111205, end: 20121204
  4. LANSOPRAZOLE [Concomitant]
     Route: 048
  5. LANTUS SOLOSTAR [Concomitant]
     Route: 058
  6. INSULIN LISPRO [Concomitant]
     Route: 058
     Dates: start: 20121128, end: 20121204
  7. POTASSIUM CANRENOATE [Concomitant]
     Route: 048
  8. PORTOLAC [Concomitant]

REACTIONS (1)
  - Sinus bradycardia [Not Recovered/Not Resolved]
